FAERS Safety Report 9131380 (Version 1)
Quarter: 2013Q1

REPORT INFORMATION
  Report Type: Spontaneous
  Country: US (occurrence: US)
  Receive Date: 20130301
  Receipt Date: 20130301
  Transmission Date: 20140127
  Serious: Yes (Other)
  Sender: FDA-Public Use
  Company Number: US-BAYER-2013-024462

PATIENT
  Age: 59 Year
  Sex: Female
  Weight: 102.4 kg

DRUGS (5)
  1. ALEVE CAPLET/TABLET,MIDOL EXTENDED RELIEF CAPLET [Suspect]
     Indication: ARTHRALGIA
     Dosage: 2 DF, BID
     Dates: end: 201302
  2. CALCIUM [Concomitant]
  3. MAGNESIUM [Concomitant]
  4. ZINC [Concomitant]
  5. ANTIHYPERTENSIVES [Concomitant]

REACTIONS (4)
  - Postmenopausal haemorrhage [None]
  - Contusion [None]
  - Drug ineffective [None]
  - Muscle spasms [None]
